FAERS Safety Report 9093298 (Version 3)
Quarter: 2013Q3

REPORT INFORMATION
  Report Type: Spontaneous
  Country: US (occurrence: US)
  Receive Date: 20130201
  Receipt Date: 20130703
  Transmission Date: 20140515
  Serious: Yes (Hospitalization, Other)
  Sender: FDA-Public Use
  Company Number: US-009507513-1301USA012562

PATIENT
  Sex: Female
  Weight: 86.17 kg

DRUGS (2)
  1. NUVARING [Suspect]
     Indication: MENSTRUATION IRREGULAR
     Dosage: UNK
     Route: 067
     Dates: start: 200512, end: 20060302
  2. NUVARING [Suspect]
     Indication: CONTRACEPTION

REACTIONS (27)
  - Pleural effusion [Unknown]
  - Aspiration pleural cavity [Unknown]
  - Pulmonary embolism [Unknown]
  - Hypercoagulation [Unknown]
  - Pneumothorax [Unknown]
  - Pleurisy [Unknown]
  - Dyspnoea [Unknown]
  - Dyspnoea [Unknown]
  - Chest pain [Unknown]
  - Off label use [Unknown]
  - Skin irritation [Unknown]
  - Surgery [Unknown]
  - Back pain [Unknown]
  - Mammoplasty [Unknown]
  - Plantar fasciitis [Unknown]
  - Arthralgia [Unknown]
  - Back pain [Recovering/Resolving]
  - Spinal disorder [Unknown]
  - Intervertebral disc protrusion [Unknown]
  - Back pain [Recovered/Resolved]
  - Haemoptysis [Unknown]
  - Nasal congestion [Unknown]
  - Venous thrombosis limb [Unknown]
  - Drug hypersensitivity [Unknown]
  - Drug intolerance [Unknown]
  - Electrocardiogram abnormal [Not Recovered/Not Resolved]
  - International normalised ratio increased [Recovering/Resolving]
